FAERS Safety Report 14306647 (Version 1)
Quarter: 2017Q4

REPORT INFORMATION
  Report Type: Spontaneous
  Country: US (occurrence: US)
  Receive Date: 20171220
  Receipt Date: 20171220
  Transmission Date: 20180321
  Serious: No
  Sender: FDA-Public Use
  Company Number: US-BIOGEN-2017BI00496059

PATIENT
  Age: 37 Year
  Sex: Female

DRUGS (1)
  1. TYSABRI [Suspect]
     Active Substance: NATALIZUMAB
     Indication: MULTIPLE SCLEROSIS
     Route: 042
     Dates: start: 20171207

REACTIONS (6)
  - Dizziness [Unknown]
  - Fatigue [Not Recovered/Not Resolved]
  - Diplopia [Unknown]
  - Nausea [Not Recovered/Not Resolved]
  - Vomiting [Unknown]
  - Trance [Not Recovered/Not Resolved]

NARRATIVE: CASE EVENT DATE: 20171207
